FAERS Safety Report 5781563-0 (Version None)
Quarter: 2008Q2

REPORT INFORMATION
  Report Type: 
  Country: None (occurrence: None)
  Receive Date: 20080623
  Receipt Date: 20070425
  Transmission Date: 20081010
  Serious: No
  Sender: FDA-Public Use
  Company Number: US-ASTRAZENECA-2007UW08098

PATIENT
  Age: 67 Year
  Sex: Male
  Weight: 81.6 kg

DRUGS (4)
  1. RHINOCORT [Suspect]
     Indication: SINUSITIS
     Dosage: 2 SPRAYS EACH NOSTRIL TWICE A DAY
     Route: 045
     Dates: start: 20070423
  2. ZOCOR [Concomitant]
  3. TAMBOCOR [Concomitant]
  4. NADOLOL [Concomitant]

REACTIONS (1)
  - HEART RATE IRREGULAR [None]
